FAERS Safety Report 8133461-5 (Version None)
Quarter: 2012Q1

REPORT INFORMATION
  Report Type: 
  Country: None (occurrence: None)
  Receive Date: 20120103
  Receipt Date: 20111110
  Transmission Date: 20120608
  Serious: No
  Sender: FDA-Public Use
  Company Number: AE-2011-003328

PATIENT
  Age: 57 Year
  Sex: Female
  Weight: 61.2356 kg

DRUGS (5)
  1. RIBAVIRIN [Concomitant]
  2. XANAX [Concomitant]
  3. PEGASYS [Concomitant]
  4. SYMBYAX [Concomitant]
  5. INCIVEK [Suspect]
     Dosage: 6 DOSAGE FORMS (2 DOSAGE FORMS,3 IN 1 D),ORAL
     Route: 048
     Dates: start: 20111106

REACTIONS (2)
  - BONE PAIN [None]
  - PRURITUS [None]
